FAERS Safety Report 15985349 (Version 3)
Quarter: 2019Q2

REPORT INFORMATION
  Report Type: Spontaneous
  Country: BE (occurrence: BE)
  Receive Date: 20190220
  Receipt Date: 20190409
  Transmission Date: 20190711
  Serious: Yes (Hospitalization, Other)
  Sender: FDA-Public Use
  Company Number: BE-BAUSCH-BL-2019-005029

PATIENT
  Age: 79 Year
  Sex: Male
  Weight: 67 kg

DRUGS (63)
  1. BETAHISTINE [Concomitant]
     Active Substance: BETAHISTINE
     Indication: PRODUCT USED FOR UNKNOWN INDICATION
  2. LORMETAZEPAM [Concomitant]
     Active Substance: LORMETAZEPAM
     Indication: PRODUCT USED FOR UNKNOWN INDICATION
  3. OMEPRAZOL APOTEX [Concomitant]
     Indication: PRODUCT USED FOR UNKNOWN INDICATION
  4. STERIMAR [Concomitant]
     Active Substance: SEA WATER
  5. TRADONAL [Concomitant]
     Active Substance: TRAMADOL HYDROCHLORIDE
     Indication: PRODUCT USED FOR UNKNOWN INDICATION
  6. TRADONAL [Concomitant]
     Active Substance: TRAMADOL HYDROCHLORIDE
  7. XANTHIUM [Concomitant]
  8. IBUPROFEN. [Concomitant]
     Active Substance: IBUPROFEN
  9. MICARDIS [Concomitant]
     Active Substance: TELMISARTAN
     Indication: PRODUCT USED FOR UNKNOWN INDICATION
  10. OMEPRAZOL APOTEX [Concomitant]
  11. SERETIDE [Concomitant]
     Active Substance: FLUTICASONE PROPIONATE\SALMETEROL XINAFOATE
     Indication: PRODUCT USED FOR UNKNOWN INDICATION
     Dosage: 50-500 MICRO GRAMS
  12. TRADONAL [Concomitant]
     Active Substance: TRAMADOL HYDROCHLORIDE
  13. TRADONAL [Concomitant]
     Active Substance: TRAMADOL HYDROCHLORIDE
  14. TRAMADOL PARACETAMOL SANDOZ [Concomitant]
  15. XANAX [Concomitant]
     Active Substance: ALPRAZOLAM
     Indication: PRODUCT USED FOR UNKNOWN INDICATION
  16. IBUPROFEN. [Concomitant]
     Active Substance: IBUPROFEN
  17. MAXIPIM [Concomitant]
  18. PLENVU [Suspect]
     Active Substance: ASCORBIC ACID\POLYETHYLENE GLYCOL 3350\POTASSIUM CHLORIDE\SODIUM ASCORBATE\SODIUM CHLORIDE\SODIUM SULFATE
     Indication: BOWEL PREPARATION
     Route: 048
     Dates: start: 20190205, end: 20190206
  19. ASAFLOW [Concomitant]
     Active Substance: ASPIRIN
     Indication: PRODUCT USED FOR UNKNOWN INDICATION
  20. OMEPRAZOL APOTEX [Concomitant]
  21. OMEPRAZOL APOTEX [Concomitant]
  22. TRADONAL [Concomitant]
     Active Substance: TRAMADOL HYDROCHLORIDE
  23. TRAMADOL PARACETAMOL SANDOZ [Concomitant]
  24. XANAX [Concomitant]
     Active Substance: ALPRAZOLAM
  25. IBUPROFEN. [Concomitant]
     Active Substance: IBUPROFEN
  26. IBUPROFEN. [Concomitant]
     Active Substance: IBUPROFEN
  27. IBUPROFEN. [Concomitant]
     Active Substance: IBUPROFEN
  28. MAXIPIM [Concomitant]
  29. MOMETASONE SANDOZ [Concomitant]
     Active Substance: MOMETASONE
     Indication: PRODUCT USED FOR UNKNOWN INDICATION
  30. SPIRIVA [Concomitant]
     Active Substance: TIOTROPIUM BROMIDE MONOHYDRATE
     Indication: PRODUCT USED FOR UNKNOWN INDICATION
  31. STERIMAR [Concomitant]
     Active Substance: SEA WATER
     Indication: PRODUCT USED FOR UNKNOWN INDICATION
  32. TRADONAL [Concomitant]
     Active Substance: TRAMADOL HYDROCHLORIDE
  33. TRADONAL [Concomitant]
     Active Substance: TRAMADOL HYDROCHLORIDE
  34. TRAMADOL PARACETAMOL SANDOZ [Concomitant]
  35. XANAX [Concomitant]
     Active Substance: ALPRAZOLAM
  36. CALCIVIT [Concomitant]
     Indication: PRODUCT USED FOR UNKNOWN INDICATION
  37. DUOLIN [Concomitant]
     Indication: PRODUCT USED FOR UNKNOWN INDICATION
     Dosage: INHALER
  38. XANAX [Concomitant]
     Active Substance: ALPRAZOLAM
  39. XANAX [Concomitant]
     Active Substance: ALPRAZOLAM
  40. XANAX [Concomitant]
     Active Substance: ALPRAZOLAM
  41. XANTHIUM [Concomitant]
  42. XANTHIUM [Concomitant]
  43. OMEPRAZOL APOTEX [Concomitant]
  44. TRAMADOL PARACETAMOL SANDOZ [Concomitant]
  45. XANTHIUM [Concomitant]
     Indication: PRODUCT USED FOR UNKNOWN INDICATION
  46. XANTHIUM [Concomitant]
  47. XANTHIUM [Concomitant]
  48. IBUPROFEN. [Concomitant]
     Active Substance: IBUPROFEN
     Indication: PRODUCT USED FOR UNKNOWN INDICATION
  49. MAXIPIM [Concomitant]
     Indication: PRODUCT USED FOR UNKNOWN INDICATION
  50. MAXIPIM [Concomitant]
  51. D-CURE [Concomitant]
     Active Substance: CHOLECALCIFEROL
     Indication: PRODUCT USED FOR UNKNOWN INDICATION
  52. FENOGAL [Concomitant]
     Indication: PRODUCT USED FOR UNKNOWN INDICATION
  53. TRAMADOL PARACETAMOL SANDOZ [Concomitant]
     Indication: PRODUCT USED FOR UNKNOWN INDICATION
     Dosage: 37.5-325 MG
  54. TRAMADOL PARACETAMOL SANDOZ [Concomitant]
  55. MAXIPIM [Concomitant]
  56. OMEPRAZOL APOTEX [Concomitant]
  57. OMEPRAZOL APOTEX [Concomitant]
  58. TRAMADOL PARACETAMOL SANDOZ [Concomitant]
  59. XANAX [Concomitant]
     Active Substance: ALPRAZOLAM
  60. XANTHIUM [Concomitant]
  61. IBUPROFEN. [Concomitant]
     Active Substance: IBUPROFEN
  62. MAXIPIM [Concomitant]
  63. MAXIPIM [Concomitant]

REACTIONS (20)
  - Aortic valve stenosis [Unknown]
  - Ventricular fibrillation [Unknown]
  - Atrial fibrillation [Unknown]
  - Feeling abnormal [Unknown]
  - Pneumonia [Unknown]
  - Cardiac failure [Unknown]
  - Respiratory failure [Unknown]
  - Neck pain [Unknown]
  - Hypoventilation [Unknown]
  - Orthopnoea [Unknown]
  - Influenza [Unknown]
  - Hyponatraemia [Unknown]
  - Tachycardia [Unknown]
  - Dyspnoea [Unknown]
  - Chronic obstructive pulmonary disease [Unknown]
  - Cough [Unknown]
  - Tachypnoea [Unknown]
  - Oedema peripheral [Unknown]
  - Pyrexia [Unknown]
  - Asthenia [Unknown]

NARRATIVE: CASE EVENT DATE: 2019
